FAERS Safety Report 24257200 (Version 1)
Quarter: 2024Q3

REPORT INFORMATION
  Report Type: Spontaneous
  Country: US (occurrence: US)
  Receive Date: 20240828
  Receipt Date: 20240828
  Transmission Date: 20241017
  Serious: Yes (Life-Threatening, Hospitalization, Other)
  Sender: GLAND PHARMA
  Company Number: US-GLANDPHARMA-US-2024GLNLIT00662

PATIENT
  Age: 58 Year
  Sex: Female

DRUGS (7)
  1. DIPHENHYDRAMINE HYDROCHLORIDE [Suspect]
     Active Substance: DIPHENHYDRAMINE HYDROCHLORIDE
     Indication: Pruritus
     Route: 048
  2. CLOZAPINE [Suspect]
     Active Substance: CLOZAPINE
     Indication: Schizoaffective disorder bipolar type
     Route: 065
  3. CLONAZEPAM [Concomitant]
     Active Substance: CLONAZEPAM
     Indication: Schizoaffective disorder bipolar type
     Route: 065
  4. LAMOTRIGINE [Concomitant]
     Active Substance: LAMOTRIGINE
     Indication: Schizoaffective disorder bipolar type
     Route: 065
  5. HALOPERIDOL [Concomitant]
     Active Substance: HALOPERIDOL
     Indication: Schizoaffective disorder bipolar type
     Route: 048
  6. SENNA AND DOCUSATE SODIUM [Concomitant]
     Active Substance: DOCUSATE SODIUM\SENNOSIDES
     Route: 065
  7. POLYETHYLENE GLYCOL, UNSPECIFIED [Concomitant]
     Active Substance: POLYETHYLENE GLYCOL, UNSPECIFIED
     Route: 065

REACTIONS (2)
  - Volvulus [Recovered/Resolved]
  - Product use in unapproved indication [Unknown]
